FAERS Safety Report 10694759 (Version 1)
Quarter: 2015Q1

REPORT INFORMATION
  Report Type: Spontaneous
  Country: US (occurrence: None)
  Receive Date: 20150106
  Receipt Date: 20150106
  Transmission Date: 20150721
  Serious: No
  Sender: FDA-Public Use
  Company Number: None

PATIENT
  Age: 71 Year
  Sex: Male
  Weight: 79.38 kg

DRUGS (1)
  1. CIALIS [Suspect]
     Active Substance: TADALAFIL
     Indication: LIBIDO DISORDER
     Dosage: 1 PILL AS NEEDED TAKEN BY MOUTH
     Route: 048
     Dates: start: 20141231, end: 20141231

REACTIONS (4)
  - Tinnitus [None]
  - Rhinorrhoea [None]
  - Blindness transient [None]
  - Back pain [None]

NARRATIVE: CASE EVENT DATE: 20141231
